FAERS Safety Report 13134630 (Version 2)
Quarter: 2017Q1

REPORT INFORMATION
  Report Type: Spontaneous
  Country: BR (occurrence: BR)
  Receive Date: 20170120
  Receipt Date: 20170131
  Transmission Date: 20170428
  Serious: Yes (Other)
  Sender: FDA-Public Use
  Company Number: BR-009507513-1701BRA009045

PATIENT
  Sex: Female
  Weight: 41 kg

DRUGS (1)
  1. JANUVIA [Suspect]
     Active Substance: SITAGLIPTIN PHOSPHATE
     Indication: DIABETES MELLITUS
     Dosage: 2 TABLETS (100MG EACH), SPORADICALLY EACH DAY WHEN HER DIABETES IS TOO HIGH
     Route: 048

REACTIONS (8)
  - Cataract [Unknown]
  - Incorrect dose administered [Unknown]
  - Pelvic fracture [Unknown]
  - Incorrect drug administration rate [Unknown]
  - Product packaging quantity issue [Unknown]
  - Diabetes mellitus inadequate control [Unknown]
  - Hypertension [Unknown]
  - Glaucoma [Unknown]
